FAERS Safety Report 6188736-6 (Version None)
Quarter: 2009Q2

REPORT INFORMATION
  Report Type: 
  Country: None (occurrence: None)
  Receive Date: 20090513
  Receipt Date: 20090505
  Transmission Date: 20091009
  Serious: No
  Sender: FDA-Public Use
  Company Number: US-JNJFOC-20090501644

PATIENT
  Age: 27 Day

DRUGS (2)
  1. FENTANYL [Suspect]
     Indication: DRUG EXPOSURE VIA BREAST MILK
  2. FENTANYL [Suspect]
     Indication: DRUG EXPOSURE DURING PREGNANCY

REACTIONS (3)
  - DRUG EXPOSURE DURING PREGNANCY [None]
  - DRUG EXPOSURE VIA BREAST MILK [None]
  - WEIGHT INCREASED [None]
